FAERS Safety Report 12221619 (Version 2)
Quarter: 2016Q2

REPORT INFORMATION
  Report Type: Spontaneous
  Country: US (occurrence: US)
  Receive Date: 20160330
  Receipt Date: 20160422
  Transmission Date: 20160815
  Serious: No
  Sender: FDA-Public Use
  Company Number: US-PFIZER INC-2016167777

PATIENT
  Age: 62 Year
  Sex: Female

DRUGS (5)
  1. ZANTAC [Concomitant]
     Active Substance: RANITIDINE HYDROCHLORIDE
  2. UNISOM SLEEPTABS [Concomitant]
     Active Substance: DOXYLAMINE SUCCINATE
     Dosage: UNK
  3. VITAMIN D [Concomitant]
     Active Substance: CHOLECALCIFEROL
  4. XELJANZ [Suspect]
     Active Substance: TOFACITINIB CITRATE
     Indication: RHEUMATOID ARTHRITIS
     Dosage: 5 MG, 2X/DAY
     Route: 048
     Dates: start: 201510
  5. XANAX [Concomitant]
     Active Substance: ALPRAZOLAM

REACTIONS (4)
  - Drug dose omission [Unknown]
  - Abdominal discomfort [Unknown]
  - Condition aggravated [Unknown]
  - Reflux gastritis [Unknown]

NARRATIVE: CASE EVENT DATE: 201510
